FAERS Safety Report 4507330-3 (Version None)
Quarter: 2004Q4

REPORT INFORMATION
  Report Type: 
  Country: None (occurrence: None)
  Receive Date: 20041118
  Receipt Date: 20041102
  Transmission Date: 20050328
  Serious: Yes (Hospitalization)
  Sender: FDA-Public Use
  Company Number: 200437

PATIENT
  Age: 59 Year
  Sex: Female
  Weight: 81.6475 kg

DRUGS (12)
  1. AVONEX [Suspect]
     Indication: MULTIPLE SCLEROSIS
     Dosage: 30 MCG QW IM
     Route: 030
     Dates: start: 19960701, end: 20030801
  2. AVONEX [Suspect]
     Indication: MULTIPLE SCLEROSIS
     Dosage: 30 MCG QW IM
     Route: 030
     Dates: start: 20030801
  3. DIOVAN [Concomitant]
  4. GLUCOVANCE [Concomitant]
  5. ACTOS [Concomitant]
  6. TRICOR [Concomitant]
  7. LOTREL [Concomitant]
  8. VITAMIN C [Concomitant]
  9. MULTIVITAMIN [Concomitant]
  10. LORAZEPAM [Concomitant]
  11. BACLOFEN [Concomitant]
  12. LEXAPRO [Concomitant]

REACTIONS (8)
  - BACTERIAL INFECTION [None]
  - CONDITION AGGRAVATED [None]
  - CYSTITIS [None]
  - DECUBITUS ULCER [None]
  - HAEMATOCHEZIA [None]
  - MULTIPLE SCLEROSIS [None]
  - OEDEMA PERIPHERAL [None]
  - OSTEOPOROSIS [None]
